FAERS Safety Report 4893646-8 (Version None)
Quarter: 2006Q1

REPORT INFORMATION
  Report Type: 
  Country: None (occurrence: None)
  Receive Date: 20060124
  Receipt Date: 20060111
  Transmission Date: 20060701
  Serious: Yes (Hospitalization, Other)
  Sender: FDA-Public Use
  Company Number: 2006009499

PATIENT
  Age: 74 Year
  Sex: Female

DRUGS (2)
  1. SOLU-MEDROL [Suspect]
     Indication: INTERSTITIAL LUNG DISEASE
     Dosage: INTRAVENOUS
     Route: 042
  2. PREDNISOLONE [Suspect]
     Indication: INTERSTITIAL LUNG DISEASE

REACTIONS (5)
  - CONDITION AGGRAVATED [None]
  - INTERSTITIAL LUNG DISEASE [None]
  - NOCARDIOSIS [None]
  - PULMONARY CAVITATION [None]
  - SCAR [None]
